FAERS Safety Report 8779564 (Version 1)
Quarter: 2012Q4

REPORT INFORMATION
  Report Type: 
  Country: MX (occurrence: MX)
  Receive Date: 20120912
  Receipt Date: 20120912
  Transmission Date: 20130627
  Serious: Yes (Other)
  Sender: FDA-Public Use
  Company Number: MX-SANOFI-AVENTIS-2012SA064676

PATIENT
  Age: 77 Year
  Sex: Female
  Weight: 67 kg

DRUGS (4)
  1. ARAVA [Suspect]
     Indication: RHEUMATOID ARTHRITIS
     Route: 048
     Dates: start: 2007, end: 201202
  2. COAPROVEL [Concomitant]
     Indication: HYPERTENSION ARTERIAL
     Route: 048
     Dates: start: 2009
  3. NORVAS [Concomitant]
     Indication: HYPERTENSION ARTERIAL
     Route: 048
     Dates: start: 2009
  4. TENORMIN [Concomitant]
     Indication: HYPERTENSION ARTERIAL
     Route: 048
     Dates: start: 2009

REACTIONS (3)
  - Renal failure chronic [Not Recovered/Not Resolved]
  - Hypertension [Recovered/Resolved]
  - Inappropriate schedule of drug administration [Unknown]
